FAERS Safety Report 5822437-6 (Version None)
Quarter: 2008Q3

REPORT INFORMATION
  Report Type: 
  Country: None (occurrence: None)
  Receive Date: 20080725
  Receipt Date: 20080310
  Transmission Date: 20090109
  Serious: No
  Sender: FDA-Public Use
  Company Number: US-AMGEN-KDL268922

PATIENT
  Sex: Male

DRUGS (8)
  1. EPOGEN [Suspect]
     Indication: RENAL FAILURE CHRONIC
     Dates: start: 20070911
  2. EPOGEN [Suspect]
     Indication: DIALYSIS
  3. VENOFER [Concomitant]
  4. LOPRESSOR [Concomitant]
  5. NEPHRO-VITE [Concomitant]
  6. PHOSLO [Concomitant]
  7. ZEMPLAR [Concomitant]
  8. ZOCOR [Concomitant]

REACTIONS (2)
  - FLUID RETENTION [None]
  - HAEMOGLOBIN DECREASED [None]
